FAERS Safety Report 25806103 (Version 2)
Quarter: 2025Q3

REPORT INFORMATION
  Report Type: Spontaneous
  Country: US (occurrence: US)
  Receive Date: 20250916
  Receipt Date: 20250926
  Transmission Date: 20251021
  Serious: Yes (Death)
  Sender: TEVA
  Company Number: US-TEVA-VS-3371550

PATIENT
  Age: 52 Year
  Sex: Male

DRUGS (5)
  1. DISULFIRAM [Suspect]
     Active Substance: DISULFIRAM
     Indication: Choroid melanoma
     Route: 065
  2. TEMOZOLOMIDE [Suspect]
     Active Substance: TEMOZOLOMIDE
     Indication: Choroid melanoma
     Dosage: ON DAY 1-DAY 4
     Route: 065
  3. PEMBROLIZUMAB [Suspect]
     Active Substance: PEMBROLIZUMAB
     Indication: Choroid melanoma
     Route: 065
  4. NELVUTAMIG [Suspect]
     Active Substance: NELVUTAMIG
     Indication: Choroid melanoma
     Dosage: ON DAY 1
     Route: 065
  5. ZINC [Suspect]
     Active Substance: ZINC
     Indication: Choroid melanoma
     Route: 065

REACTIONS (1)
  - Drug ineffective [Fatal]
